FAERS Safety Report 4806630-7 (Version None)
Quarter: 2005Q4

REPORT INFORMATION
  Report Type: 
  Country: None (occurrence: None)
  Receive Date: 20051019
  Receipt Date: 20051004
  Transmission Date: 20060501
  Serious: Yes (Other)
  Sender: FDA-Public Use
  Company Number: USA050290543

PATIENT
  Age: 10 Year
  Sex: Male
  Weight: 36 kg

DRUGS (1)
  1. HUMATROPE [Suspect]
     Dosage: 1.8 MG
     Dates: start: 20041005, end: 20041026

REACTIONS (1)
  - BENIGN INTRACRANIAL HYPERTENSION [None]
